FAERS Safety Report 10926083 (Version 1)
Quarter: 2015Q1

REPORT INFORMATION
  Report Type: Spontaneous
  Country: US (occurrence: None)
  Receive Date: 20150316
  Receipt Date: 20150316
  Transmission Date: 20150721
  Serious: Yes (Other)
  Sender: FDA-Public Use
  Company Number: None

PATIENT
  Age: 58 Year
  Sex: Female
  Weight: 65.77 kg

DRUGS (11)
  1. ATENOLOL. [Concomitant]
     Active Substance: ATENOLOL
  2. PROBIOTIC 10 [Concomitant]
  3. AMITRIPTYLIN [Suspect]
     Active Substance: AMITRIPTYLINE
     Indication: PAIN
     Dosage: COUPLE OF MONTHS; 1XAM AND 1X PM 1 PILL EACH
     Route: 048
  4. AMITRIPTYLIN [Suspect]
     Active Substance: AMITRIPTYLINE
     Indication: DIABETES MELLITUS
     Dosage: COUPLE OF MONTHS; 1XAM AND 1X PM 1 PILL EACH
     Route: 048
  5. HAIR SKIN AND NAIL VITAMINS [Concomitant]
  6. AMITRIPTYLIN [Suspect]
     Active Substance: AMITRIPTYLINE
     Indication: PAIN IN EXTREMITY
     Dosage: COUPLE OF MONTHS; 1XAM AND 1X PM 1 PILL EACH
     Route: 048
  7. VITAMIN D3 [Concomitant]
     Active Substance: CHOLECALCIFEROL
  8. DEXILANT [Concomitant]
     Active Substance: DEXLANSOPRAZOLE
  9. AMITRIPTYLINE [Concomitant]
     Active Substance: AMITRIPTYLINE
  10. POTASSIUM GLUCONATE [Concomitant]
     Active Substance: POTASSIUM GLUCONATE
  11. NATURAL VEGETABLE LAXATIVE [Concomitant]
     Active Substance: SENNOSIDES A AND B

REACTIONS (7)
  - Negative thoughts [None]
  - Product colour issue [None]
  - Pruritus [None]
  - Product quality issue [None]
  - Haemorrhage [None]
  - Nightmare [None]
  - Burning sensation [None]

NARRATIVE: CASE EVENT DATE: 20150312
